FAERS Safety Report 9278046 (Version 1)
Quarter: 2013Q2

REPORT INFORMATION
  Report Type: Spontaneous
  Country: US (occurrence: US)
  Receive Date: 20130508
  Receipt Date: 20130508
  Transmission Date: 20140414
  Serious: No
  Sender: FDA-Public Use
  Company Number: US-BIOGENIDEC-2013BI038778

PATIENT
  Sex: Male

DRUGS (4)
  1. AVONEX [Suspect]
     Indication: MULTIPLE SCLEROSIS
     Route: 030
     Dates: start: 20081022
  2. AVONEX [Suspect]
     Indication: MULTIPLE SCLEROSIS
     Route: 030
     Dates: start: 20120215
  3. AVONEX [Suspect]
     Indication: MULTIPLE SCLEROSIS
     Route: 030
     Dates: start: 20120822
  4. PERCOCET [Concomitant]
     Indication: PRODUCT USED FOR UNKNOWN INDICATION

REACTIONS (7)
  - Abdominal pain upper [Not Recovered/Not Resolved]
  - Multiple allergies [Recovered/Resolved]
  - Frequent bowel movements [Not Recovered/Not Resolved]
  - Constipation [Not Recovered/Not Resolved]
  - Feeling abnormal [Recovered/Resolved]
  - Pain [Not Recovered/Not Resolved]
  - Injection site bruising [Not Recovered/Not Resolved]
